FAERS Safety Report 4463259-0 (Version None)
Quarter: 2004Q3

REPORT INFORMATION
  Report Type: 
  Country: None (occurrence: None)
  Receive Date: 20040930
  Receipt Date: 20040921
  Transmission Date: 20050211
  Serious: Yes (Other)
  Sender: FDA-Public Use
  Company Number: GB-GLAXOSMITHKLINE-B0346001A

PATIENT
  Age: 45 Year
  Sex: Female
  Weight: 70 kg

DRUGS (5)
  1. AVANDIA [Suspect]
     Dosage: 4MG PER DAY
     Route: 048
     Dates: start: 20040803, end: 20040904
  2. METFORMIN HCL [Concomitant]
     Dosage: 500MG PER DAY
     Route: 048
     Dates: start: 20040420
  3. ROSUVASTATIN [Concomitant]
     Dosage: 20MG PER DAY
     Route: 048
     Dates: start: 20040330
  4. LEVOTHYROXINE SODIUM [Concomitant]
     Indication: HYPOTHYROIDISM
     Dosage: 100MCG PER DAY
     Route: 048
     Dates: start: 20010101
  5. FERROUS SULFATE TAB [Concomitant]
     Indication: MENORRHAGIA
     Dosage: 200MG PER DAY
     Route: 048
     Dates: start: 20040801

REACTIONS (4)
  - RASH GENERALISED [None]
  - RASH MACULAR [None]
  - SKIN IRRITATION [None]
  - URTICARIA GENERALISED [None]
